FAERS Safety Report 6670325-8 (Version None)
Quarter: 2010Q2

REPORT INFORMATION
  Report Type: 
  Country: None (occurrence: None)
  Receive Date: 20100405
  Receipt Date: 20100325
  Transmission Date: 20101027
  Serious: Yes (Other)
  Sender: FDA-Public Use
  Company Number: 1000012791

PATIENT
  Age: 81 Year
  Sex: Female
  Weight: 34 kg

DRUGS (4)
  1. MEMANTINE HCL [Suspect]
     Indication: DEMENTIA ALZHEIMER'S TYPE
     Dosage: 20 MG, ORAL
     Route: 048
     Dates: start: 20071202, end: 20100316
  2. ENALAPRIL MALEATE [Concomitant]
  3. TRICHLORMETHIAZIDE [Concomitant]
  4. AMLODIPINE [Concomitant]

REACTIONS (3)
  - ATROPHIC VULVOVAGINITIS [None]
  - OEDEMA PERIPHERAL [None]
  - VAGINAL CANCER [None]
